FAERS Safety Report 8964363 (Version 1)
Quarter: 2012Q4

REPORT INFORMATION
  Report Type: 
  Country: JP (occurrence: JP)
  Receive Date: 20121214
  Receipt Date: 20121214
  Transmission Date: 20130627
  Serious: Yes (Other)
  Sender: FDA-Public Use
  Company Number: JP-PFIZER INC-2012317094

PATIENT
  Age: 72 Year
  Sex: Male

DRUGS (3)
  1. IBUPROFEN [Suspect]
     Indication: ARTHRALGIA
     Dosage: 150 mg, UNK
     Route: 048
  2. IBUPROFEN [Suspect]
     Indication: SORE THROAT
  3. GLIBENCLAMIDE [Concomitant]
     Indication: TYPE 2 DIABETES MELLITUS
     Dosage: 2.5 mg, 1x/day

REACTIONS (6)
  - Hypoglycaemia [Recovered/Resolved]
  - Drug effect increased [Recovered/Resolved]
  - Nausea [Recovered/Resolved]
  - Hyperhidrosis [Recovered/Resolved]
  - Palpitations [Recovered/Resolved]
  - Syncope [Recovered/Resolved]
